FAERS Safety Report 8468935 (Version 3)
Quarter: 2013Q3

REPORT INFORMATION
  Report Type: Report from Study
  Country: NL (occurrence: NL)
  Receive Date: 20120321
  Receipt Date: 20130708
  Transmission Date: 20140515
  Serious: Yes (Other)
  Sender: FDA-Public Use
  Company Number: NL-ROCHE-1048537

PATIENT
  Sex: Male

DRUGS (2)
  1. NELFINAVIR [Suspect]
     Indication: RECTAL CANCER
     Dosage: FOR AN OVERALL TREATMENT TIME OF 38 DAYS
     Route: 065
  2. CAPECITABINE [Suspect]
     Indication: RECTAL CANCER
     Dosage: FOR AN OVERALL TREATMENT TIME OF 38 DAYS
     Route: 065

REACTIONS (2)
  - Wound dehiscence [Unknown]
  - Transaminases increased [Unknown]
